FAERS Safety Report 8505808-9 (Version None)
Quarter: 2012Q3

REPORT INFORMATION
  Report Type: 
  Country: None (occurrence: None)
  Receive Date: 20120706
  Receipt Date: 20120706
  Transmission Date: 20120928
  Serious: Yes (Other)
  Sender: FDA-Public Use
  Company Number: None

PATIENT
  Age: 19 Year
  Sex: Female
  Weight: 57 kg

DRUGS (2)
  1. LOESTRIN 24 FE [Concomitant]
  2. NEOSPORIN [Suspect]
     Indication: ECZEMA
     Dosage: QUARTER 1X TOPICAL
     Route: 061
     Dates: start: 20120613, end: 20120614

REACTIONS (7)
  - EYE SWELLING [None]
  - URTICARIA [None]
  - VOMITING [None]
  - FACIAL PAIN [None]
  - MALAISE [None]
  - RASH ERYTHEMATOUS [None]
  - SWELLING FACE [None]
